FAERS Safety Report 19094720 (Version 1)
Quarter: 2021Q2

REPORT INFORMATION
  Report Type: Other
  Country: FR (occurrence: FR)
  Receive Date: 20210405
  Receipt Date: 20210405
  Transmission Date: 20210717
  Serious: Yes (Hospitalization, Other)
  Sender: FDA-Public Use
  Company Number: FR-VALIDUS PHARMACEUTICALS LLC-FR-2021VAL000609

PATIENT
  Age: 47 Year
  Sex: Male
  Weight: 95 kg

DRUGS (5)
  1. ERYTHROMYCIN ETHYLSUCCINATE. [Suspect]
     Active Substance: ERYTHROMYCIN ETHYLSUCCINATE
     Indication: PERITONITIS
     Dosage: UNK
     Route: 042
     Dates: start: 20180113, end: 20180113
  2. ACUPAN [Suspect]
     Active Substance: NEFOPAM HYDROCHLORIDE
     Indication: PROCEDURAL PAIN
     Dosage: UNK
     Route: 030
     Dates: start: 20180113, end: 20180122
  3. AMOXICILLIN AND CLAVULA. POTASSIUM /01000301/ [Suspect]
     Active Substance: AMOXICILLIN\CLAVULANATE POTASSIUM
     Indication: PERITONITIS
     Dosage: UNK
     Route: 042
     Dates: start: 20180113, end: 20180115
  4. FUROSEMIDE. [Suspect]
     Active Substance: FUROSEMIDE
     Indication: OEDEMA
     Dosage: INJECTION SOLUTION
     Route: 042
     Dates: start: 20180113, end: 20180114
  5. FLAGYL [Suspect]
     Active Substance: METRONIDAZOLE\METRONIDAZOLE HYDROCHLORIDE
     Indication: PERITONITIS
     Dosage: 1.5 MG, QD
     Route: 042
     Dates: start: 20180107, end: 20180123

REACTIONS (3)
  - Neuropathy peripheral [Not Recovered/Not Resolved]
  - Back pain [Recovered/Resolved]
  - Headache [Recovered/Resolved]

NARRATIVE: CASE EVENT DATE: 20180114
